FAERS Safety Report 19917257 (Version 2)
Quarter: 2021Q4

REPORT INFORMATION
  Report Type: Spontaneous
  Country: US (occurrence: US)
  Receive Date: 20211005
  Receipt Date: 20211015
  Transmission Date: 20220304
  Serious: Yes (Other)
  Sender: FDA-Public Use
  Company Number: US-009507513-2110USA000092

PATIENT
  Age: 65 Year
  Sex: Female

DRUGS (1)
  1. CUBICIN [Suspect]
     Active Substance: DAPTOMYCIN
     Indication: Enterococcal infection
     Dosage: UNK

REACTIONS (2)
  - Pathogen resistance [Unknown]
  - Product use in unapproved indication [Unknown]
